FAERS Safety Report 25453407 (Version 1)
Quarter: 2025Q2

REPORT INFORMATION
  Report Type: Report from Study
  Country: CA (occurrence: CA)
  Receive Date: 20250619
  Receipt Date: 20250619
  Transmission Date: 20250716
  Serious: Yes (Other)
  Sender: JOHNSON AND JOHNSON
  Company Number: CA-JNJFOC-20250529136

PATIENT
  Age: 13 Year
  Sex: Male
  Weight: 40 kg

DRUGS (2)
  1. REMICADE [Suspect]
     Active Substance: INFLIXIMAB
     Indication: Juvenile idiopathic arthritis
     Dosage: THERAPY START DATE GIVEN AS 09-JUN-2025
     Route: 041
     Dates: start: 20250609
  2. REMICADE [Suspect]
     Active Substance: INFLIXIMAB
     Dosage: 240 MG
     Route: 041

REACTIONS (2)
  - Juvenile idiopathic arthritis [Unknown]
  - Off label use [Unknown]
